FAERS Safety Report 9700384 (Version 1)
Quarter: 2013Q4

REPORT INFORMATION
  Report Type: Spontaneous
  Country: US (occurrence: US)
  Receive Date: 20131121
  Receipt Date: 20131121
  Transmission Date: 20140711
  Serious: Yes (Hospitalization)
  Sender: FDA-Public Use
  Company Number: US-TARO PHARMACEUTICALS U.S.A., INC-2013SUN05023

PATIENT
  Age: 3 Year
  Sex: Male

DRUGS (2)
  1. PHENYTOIN SODIUM [Suspect]
     Indication: EPILEPSY
     Route: 065
  2. VALPROIC ACID CAPSULES, USP 250 MG [Suspect]
     Indication: EPILEPSY
     Route: 065

REACTIONS (2)
  - Epidermolysis bullosa [Unknown]
  - Immune thrombocytopenic purpura [Unknown]
